FAERS Safety Report 7536158-5 (Version None)
Quarter: 2011Q2

REPORT INFORMATION
  Report Type: 
  Country: None (occurrence: None)
  Receive Date: 20110602
  Receipt Date: 20110524
  Transmission Date: 20111010
  Serious: Yes (Other)
  Sender: FDA-Public Use
  Company Number: BR-ACCORD-009296

PATIENT
  Age: 56 Year
  Sex: Male
  Weight: 64 kg

DRUGS (6)
  1. DEXAMETHASONE [Concomitant]
  2. DIPHENHYDRAMINE HCL [Concomitant]
  3. ONDANSETRON [Concomitant]
  4. PACLITAXEL [Suspect]
     Indication: OESOPHAGEAL CARCINOMA
     Dosage: 138.00-MG-1.0DAYS / INTRAVENOUS
     Route: 042
     Dates: start: 20110516
  5. CISPLATIN [Suspect]
     Indication: OESOPHAGEAL CARCINOMA
     Dates: start: 20110516
  6. RANITIDINE [Concomitant]

REACTIONS (4)
  - BACK PAIN [None]
  - OFF LABEL USE [None]
  - COUGH [None]
  - DYSPNOEA [None]
